FAERS Safety Report 7334951-5 (Version None)
Quarter: 2011Q1

REPORT INFORMATION
  Report Type: 
  Country: None (occurrence: None)
  Receive Date: 20110307
  Receipt Date: 20110224
  Transmission Date: 20110831
  Serious: Yes (Other)
  Sender: FDA-Public Use
  Company Number: JP-ROCHE-757357

PATIENT
  Sex: Female
  Weight: 54 kg

DRUGS (13)
  1. PEGASYS [Suspect]
     Route: 058
     Dates: start: 20071206, end: 20081120
  2. PEGASYS [Suspect]
     Route: 058
     Dates: start: 20091203, end: 20100722
  3. PARIET [Concomitant]
     Dosage: DOSE FORM: PERORAL AGENT
     Dates: start: 20090116
  4. COPEGUS [Suspect]
     Route: 048
     Dates: start: 20080313, end: 20081120
  5. URSO 250 [Concomitant]
     Dosage: DOSE FORM: PERORAL AGENT
     Route: 048
     Dates: start: 20040909, end: 20100325
  6. DIOVAN [Concomitant]
     Dosage: DOSE FORM: PERORAL AGENT
     Route: 050
     Dates: start: 20090730
  7. PEGASYS [Suspect]
     Indication: HEPATITIS C
     Route: 058
     Dates: start: 20050706, end: 20060601
  8. PEGASYS [Suspect]
     Route: 058
     Dates: start: 20100722, end: 20101104
  9. MUCOSTA [Concomitant]
     Dosage: DOSE FORM: PERORAL AGENT
     Route: 048
     Dates: start: 20040909, end: 20100325
  10. COPEGUS [Suspect]
     Indication: HEPATITIS C
     Dosage: NOTE: AMOUNT 2
     Route: 048
     Dates: start: 20071206, end: 20080313
  11. NORVASC [Concomitant]
     Dosage: DOSE FORM: PERORAL AGENT
     Route: 048
     Dates: start: 20040909, end: 20090730
  12. TAGAMET [Concomitant]
     Dosage: DOSE FORM: PERORAL AGENT
     Route: 048
     Dates: start: 20040909, end: 20090116
  13. MAGMITT [Concomitant]
     Dosage: DOSE FORM: PERORAL AGENT
     Dates: start: 20081016

REACTIONS (4)
  - GASTRIC ULCER HAEMORRHAGE [None]
  - NORMOCHROMIC NORMOCYTIC ANAEMIA [None]
  - MYELODYSPLASTIC SYNDROME [None]
  - ANAEMIA [None]
